FAERS Safety Report 12410648 (Version 1)
Quarter: 2016Q2

REPORT INFORMATION
  Report Type: Spontaneous
  Country: GB (occurrence: GB)
  Receive Date: 20160527
  Receipt Date: 20160527
  Transmission Date: 20160815
  Serious: Yes (Other)
  Sender: FDA-Public Use
  Company Number: GB-ACCORD-040780

PATIENT
  Age: 69 Year
  Sex: Male

DRUGS (6)
  1. LEVETIRACETAM. [Suspect]
     Active Substance: LEVETIRACETAM
     Indication: SEIZURE
     Route: 048
     Dates: end: 20160412
  2. DEXAMETHASONE. [Concomitant]
     Active Substance: DEXAMETHASONE
  3. SIMVASTATIN. [Concomitant]
     Active Substance: SIMVASTATIN
  4. OMEPRAZOLE. [Concomitant]
     Active Substance: OMEPRAZOLE
  5. DALTEPARIN [Concomitant]
     Active Substance: DALTEPARIN
  6. MIDAZOLAM [Concomitant]
     Active Substance: MIDAZOLAM\MIDAZOLAM HYDROCHLORIDE

REACTIONS (3)
  - Toxic epidermal necrolysis [Not Recovered/Not Resolved]
  - Pain [Unknown]
  - Staphylococcal scalded skin syndrome [Unknown]

NARRATIVE: CASE EVENT DATE: 20160330
